FAERS Safety Report 19476881 (Version 1)
Quarter: 2021Q2

REPORT INFORMATION
  Report Type: Spontaneous
  Country: NL (occurrence: DE)
  Receive Date: 20210630
  Receipt Date: 20210630
  Transmission Date: 20210717
  Serious: Yes (Other)
  Sender: FDA-Public Use
  Company Number: DE-FRESENIUS KABI-FK202106396

PATIENT
  Age: 48 Year
  Sex: Male

DRUGS (8)
  1. DENOSUMAB [Suspect]
     Active Substance: DENOSUMAB
     Dosage: 120MG EVERY 4 WEEKS
     Route: 065
     Dates: start: 201810, end: 201812
  2. DOCETAXEL (MANUFACTURER UNKNOWN) [Suspect]
     Active Substance: DOCETAXEL
     Indication: NON-SMALL CELL LUNG CANCER
     Dosage: 75MG/M2 D1, Q22
     Route: 065
     Dates: start: 201907
  3. PEMETREXED (MANUFACTURER UNKNOWN) [Suspect]
     Active Substance: PEMETREXED
     Dosage: 500MG/M^2 DAY 1 REPETITION DAY 22
     Route: 065
     Dates: start: 201810, end: 201812
  4. PEMBROLIZUMAB. [Suspect]
     Active Substance: PEMBROLIZUMAB
     Indication: NON-SMALL CELL LUNG CANCER
     Dosage: 200MG DAY 1 REPETITION DAY 22
     Route: 065
     Dates: start: 201810, end: 201812
  5. PEMBROLIZUMAB. [Suspect]
     Active Substance: PEMBROLIZUMAB
     Dosage: 200MG DAY 1 REPETITION DAY 22
     Route: 065
     Dates: start: 201901, end: 201902
  6. DENOSUMAB [Suspect]
     Active Substance: DENOSUMAB
     Indication: NON-SMALL CELL LUNG CANCER
     Dosage: UNK UNK, EVERY 4 WEEKS
     Route: 065
     Dates: start: 201901, end: 201902
  7. CARBOPLATIN (MANUFACTURER UNKNOWN) [Suspect]
     Active Substance: CARBOPLATIN
     Indication: NON-SMALL CELL LUNG CANCER
     Dosage: AUC 5 DAY 1 REPETITION DAY 22
     Route: 065
     Dates: start: 201810, end: 201812
  8. PEMETREXED (MANUFACTURER UNKNOWN) [Suspect]
     Active Substance: PEMETREXED
     Indication: NON-SMALL CELL LUNG CANCER
     Dosage: 500MG/M^2 DAY 1 REPETITION DAY 22
     Route: 065
     Dates: start: 201901, end: 201902

REACTIONS (4)
  - Malignant neoplasm progression [Unknown]
  - Nephritis [Unknown]
  - Neutropenia [Unknown]
  - Influenza [Unknown]

NARRATIVE: CASE EVENT DATE: 2019
